FAERS Safety Report 26091622 (Version 2)
Quarter: 2025Q4

REPORT INFORMATION
  Report Type: Spontaneous
  Country: US (occurrence: US)
  Receive Date: 20251126
  Receipt Date: 20251210
  Transmission Date: 20260117
  Serious: Yes (Other)
  Sender: BAUSCH AND LOMB
  Company Number: US-BAUSCHBL-2025BNL032526

PATIENT
  Age: 69 Year
  Sex: Male

DRUGS (7)
  1. METHAZOLAMIDE [Suspect]
     Active Substance: METHAZOLAMIDE
     Indication: Tremor
  2. PRIMIDONE [Suspect]
     Active Substance: PRIMIDONE
     Indication: Tremor
  3. PRIMIDONE [Suspect]
     Active Substance: PRIMIDONE
     Dosage: TAPERED
  4. PROPRANOLOL [Suspect]
     Active Substance: PROPRANOLOL HYDROCHLORIDE
     Indication: Tremor
  5. GABAPENTIN [Suspect]
     Active Substance: GABAPENTIN
     Indication: Tremor
  6. GABAPENTIN [Suspect]
     Active Substance: GABAPENTIN
     Dosage: TAPERED
  7. PREDNISONE [Concomitant]
     Active Substance: PREDNISONE
     Indication: Bronchitis

REACTIONS (3)
  - Therapy non-responder [Unknown]
  - Fatigue [Unknown]
  - Cognitive disorder [Unknown]
